FAERS Safety Report 8538631-X (Version None)
Quarter: 2012Q3

REPORT INFORMATION
  Report Type: 
  Country: None (occurrence: None)
  Receive Date: 20120718
  Receipt Date: 20120718
  Transmission Date: 20120928
  Serious: Yes (Other)
  Sender: FDA-Public Use
  Company Number: None

PATIENT
  Sex: Female
  Weight: 65.7716 kg

DRUGS (1)
  1. LEVOTHYROXINE SODIUM [Suspect]
     Indication: HYPOTHYROIDISM
     Dosage: 1-50MCG EVERY OTHER DAY MOUTH
     Route: 048
     Dates: start: 20120521, end: 20120622

REACTIONS (2)
  - JOINT STIFFNESS [None]
  - JOINT SWELLING [None]
